FAERS Safety Report 4964445-3 (Version None)
Quarter: 2006Q1

REPORT INFORMATION
  Report Type: 
  Country: None (occurrence: None)
  Receive Date: 20060331
  Receipt Date: 20060322
  Transmission Date: 20060701
  Serious: Yes (Other)
  Sender: FDA-Public Use
  Company Number: 2006-03-1760

PATIENT
  Age: 52 Year
  Sex: Female
  Weight: 75 kg

DRUGS (1)
  1. DIPROGENTA CREAM [Suspect]
     Dosage: 1-2X DAILY TOP-DERM
     Route: 061
     Dates: start: 20060315, end: 20060316

REACTIONS (6)
  - BURNING SENSATION [None]
  - CONDITION AGGRAVATED [None]
  - HAEMORRHAGE [None]
  - PAIN [None]
  - REFUSAL OF TREATMENT BY PATIENT [None]
  - WOUND [None]
